FAERS Safety Report 5636791-1 (Version None)
Quarter: 2008Q1

REPORT INFORMATION
  Report Type: 
  Country: None (occurrence: None)
  Receive Date: 20080225
  Receipt Date: 20080213
  Transmission Date: 20080703
  Serious: Yes (Death, Other)
  Sender: FDA-Public Use
  Company Number: JP-MERCK-0802USA04178

PATIENT
  Age: 90 Year
  Sex: Female

DRUGS (5)
  1. PEPCID [Suspect]
     Route: 048
     Dates: end: 20080204
  2. PEPCID [Suspect]
     Indication: HAEMORRHAGE
     Route: 042
     Dates: start: 20080205, end: 20080212
  3. ESTAZOLAM [Concomitant]
     Route: 065
  4. POLARAMINE [Concomitant]
     Route: 065
  5. GASMOTIN [Concomitant]
     Route: 048

REACTIONS (2)
  - CARDIAC FAILURE [None]
  - ERYTHEMA [None]
